FAERS Safety Report 7715813-8 (Version None)
Quarter: 2011Q3

REPORT INFORMATION
  Report Type: 
  Country: None (occurrence: None)
  Receive Date: 20110829
  Receipt Date: 20110823
  Transmission Date: 20111222
  Serious: Yes (Hospitalization)
  Sender: FDA-Public Use
  Company Number: US-SANOFI-AVENTIS-2011SA054575

PATIENT
  Age: 93 Year
  Sex: Male

DRUGS (3)
  1. INVESTIGATIONAL DRUG [Suspect]
     Indication: MALIGNANT MELANOMA
     Route: 042
     Dates: start: 20110627, end: 20110714
  2. INVESTIGATIONAL DRUG [Suspect]
     Route: 042
     Dates: start: 20110716
  3. ZOLPIDEM TARTRATE [Suspect]
     Route: 048

REACTIONS (3)
  - FALL [None]
  - DIZZINESS [None]
  - HEAD INJURY [None]
